FAERS Safety Report 6093955-3 (Version None)
Quarter: 2009Q1

REPORT INFORMATION
  Report Type: 
  Country: None (occurrence: None)
  Receive Date: 20090223
  Receipt Date: 20090211
  Transmission Date: 20090719
  Serious: Yes (Hospitalization)
  Sender: FDA-Public Use
  Company Number: GXKR2009GB01893

PATIENT
  Age: 29 Year
  Sex: Female

DRUGS (5)
  1. DOXYCYCLINE [Suspect]
     Indication: PELVIC INFLAMMATORY DISEASE
     Dosage: 100 MG, BID, ORAL
     Route: 048
  2. IBUPROFEN [Suspect]
     Indication: PLANTAR FASCIITIS
     Dosage: TOPICAL
     Route: 061
  3. CLOTRIMAZOLE [Suspect]
     Indication: CANDIDIASIS
     Dosage: 200 MG, VAGINAL
     Route: 067
  4. SPORANOX [Suspect]
     Indication: VULVOVAGINAL CANDIDIASIS
     Dosage: 200 MG, BID, ORAL; 100 MG, 2/12 HOURS, ORAL
     Route: 048
     Dates: start: 20080214, end: 20080215
  5. SPORANOX [Suspect]
     Indication: VULVOVAGINAL CANDIDIASIS
     Dosage: 200 MG, BID, ORAL; 100 MG, 2/12 HOURS, ORAL
     Route: 048
     Dates: start: 20080131

REACTIONS (6)
  - ARTHRALGIA [None]
  - CAESAREAN SECTION [None]
  - DRUG EXPOSURE DURING PREGNANCY [None]
  - PELVIC PAIN [None]
  - PLANTAR FASCIITIS [None]
  - VULVOVAGINAL CANDIDIASIS [None]
